FAERS Safety Report 24095715 (Version 1)
Quarter: 2024Q3

REPORT INFORMATION
  Report Type: Spontaneous
  Country: US (occurrence: US)
  Receive Date: 20240716
  Receipt Date: 20240716
  Transmission Date: 20241017
  Serious: No
  Sender: BAYER
  Company Number: US-BAYER-2024A098915

PATIENT
  Age: 87 Year
  Sex: Male

DRUGS (2)
  1. MIRALAX [Suspect]
     Active Substance: POLYETHYLENE GLYCOL 3350
     Indication: Gastrointestinal disorder
     Dosage: ONE CUP OF THE MEASURING CAP WITH COLD WATER DAILY BEFORE BREAKFAST
     Route: 048
     Dates: start: 201907, end: 20240709
  2. INSULIN NOS [Concomitant]
     Active Substance: INSULIN NOS

REACTIONS (1)
  - Vomiting [Not Recovered/Not Resolved]
